FAERS Safety Report 9015256 (Version 1)
Quarter: 2013Q1

REPORT INFORMATION
  Report Type: Spontaneous
  Country: US (occurrence: None)
  Receive Date: 20130109
  Receipt Date: 20130109
  Transmission Date: 20140127
  Serious: Yes (Other)
  Sender: FDA-Public Use
  Company Number: None

PATIENT
  Sex: Female
  Weight: 54.43 kg

DRUGS (1)
  1. VITAMIN D [Suspect]
     Indication: VITAMIN D DECREASED
     Route: 048
     Dates: start: 20121001, end: 20121201

REACTIONS (5)
  - Pruritus [None]
  - Blister [None]
  - Scab [None]
  - Polyuria [None]
  - Visual impairment [None]
